FAERS Safety Report 5128157-8 (Version None)
Quarter: 2006Q4

REPORT INFORMATION
  Report Type: 
  Country: None (occurrence: None)
  Receive Date: 20061017
  Receipt Date: 20061009
  Transmission Date: 20070319
  Serious: Yes (Life-Threatening, Hospitalization, Disabling, Congenital Anomaly)
  Sender: FDA-Public Use
  Company Number: GB-BAYER-200611242BNE

PATIENT
  Sex: Male
  Weight: 10 kg

DRUGS (2)
  1. ASPIRIN [Suspect]
     Indication: ANTIPHOSPHOLIPID SYNDROME
     Route: 064
  2. HEPARIN [Suspect]
     Indication: ANTIPHOSPHOLIPID SYNDROME
     Route: 064

REACTIONS (3)
  - CONGENITAL ANOMALY [None]
  - DIAPHRAGMATIC PARALYSIS [None]
  - DRUG EXPOSURE DURING PREGNANCY [None]
